FAERS Safety Report 21412651 (Version 1)
Quarter: 2022Q4

REPORT INFORMATION
  Report Type: Spontaneous
  Country: AU (occurrence: AU)
  Receive Date: 20221005
  Receipt Date: 20221005
  Transmission Date: 20230113
  Serious: Yes (Death, Other)
  Sender: FDA-Public Use
  Company Number: AU-PFIZER INC-2021594757

PATIENT
  Age: 61 Year
  Sex: Female

DRUGS (7)
  1. MORPHINE SULFATE [Suspect]
     Active Substance: MORPHINE SULFATE
     Indication: Radiculopathy
     Dosage: 60 MG
     Route: 030
  2. MORPHINE SULFATE [Suspect]
     Active Substance: MORPHINE SULFATE
     Indication: Neck pain
  3. MORPHINE SULFATE [Suspect]
     Active Substance: MORPHINE SULFATE
     Indication: Pain
  4. MORPHINE [Suspect]
     Active Substance: MORPHINE
     Indication: Breakthrough pain
     Dosage: 10 MG/ML, AS NEEDED
     Route: 048
  5. DIAZEPAM [Suspect]
     Active Substance: DIAZEPAM
     Dosage: 10 MG
  6. TAPENTADOL [Suspect]
     Active Substance: TAPENTADOL
     Indication: Radiculopathy
     Dosage: 200 MG
  7. TAPENTADOL [Suspect]
     Active Substance: TAPENTADOL
     Indication: Neck pain

REACTIONS (3)
  - Drug tolerance [Fatal]
  - Respiratory arrest [Fatal]
  - Cardiac arrest [Fatal]
